FAERS Safety Report 19022331 (Version 1)
Quarter: 2021Q1

REPORT INFORMATION
  Report Type: Spontaneous
  Country: GB (occurrence: GB)
  Receive Date: 20210318
  Receipt Date: 20210318
  Transmission Date: 20210420
  Serious: Yes (Other)
  Sender: FDA-Public Use
  Company Number: GB-EMD SERONO-9224987

PATIENT
  Age: 38 Year
  Sex: Female

DRUGS (1)
  1. SAIZEN [Suspect]
     Active Substance: SOMATROPIN
     Indication: GROWTH HORMONE DEFICIENCY
     Dosage: SAIZEN 8MG CLICK.EASY POWDER AND SOLVENT FOR SOLUTION FOR INJECTION VIALS

REACTIONS (2)
  - Kidney infection [Unknown]
  - Infection [Unknown]

NARRATIVE: CASE EVENT DATE: 202012
